FAERS Safety Report 5079978-1 (Version None)
Quarter: 2006Q3

REPORT INFORMATION
  Report Type: 
  Country: None (occurrence: None)
  Receive Date: 20060720
  Receipt Date: 20050705
  Transmission Date: 20061208
  Serious: Yes (Hospitalization)
  Sender: FDA-Public Use
  Company Number: 2005100080

PATIENT
  Age: 69 Year
  Sex: Female

DRUGS (8)
  1. CELEBREX [Suspect]
     Indication: ILL-DEFINED DISORDER
     Dosage: (200 MG, ORAL)
     Route: 048
     Dates: start: 20010813, end: 20040521
  2. DIPHENHYDRAMINE [Concomitant]
  3. EFFEXOR [Concomitant]
  4. PRILOSEC [Concomitant]
  5. ESTRADIOL [Concomitant]
  6. PRAVACHOL [Concomitant]
  7. CAPTOPRIL [Concomitant]
  8. PAXIL [Concomitant]

REACTIONS (1)
  - CEREBROVASCULAR ACCIDENT [None]
